FAERS Safety Report 13062861 (Version 1)
Quarter: 2016Q4

REPORT INFORMATION
  Report Type: Spontaneous
  Country: IT (occurrence: IT)
  Receive Date: 20161226
  Receipt Date: 20161226
  Transmission Date: 20170207
  Serious: Yes (Other)
  Sender: FDA-Public Use
  Company Number: IT-AMGEN-ITASP2016182320

PATIENT
  Age: 45 Year
  Sex: Female
  Weight: 90 kg

DRUGS (4)
  1. ENBREL [Suspect]
     Active Substance: ETANERCEPT
     Indication: PSORIASIS
     Dosage: 50 MG, WEEKLY
     Route: 058
     Dates: start: 20160330, end: 20160920
  2. CARDIOASPIRIN [Concomitant]
     Active Substance: ASPIRIN
     Indication: HYPERFIBRINOGENAEMIA
     Dosage: 100 MG, UNK
     Route: 048
     Dates: start: 20140101, end: 20161219
  3. ENBREL [Suspect]
     Active Substance: ETANERCEPT
     Dosage: 100 MG, WEEKLY
     Route: 065
     Dates: start: 20160920, end: 20161018
  4. ANTACAL [Concomitant]
     Active Substance: AMLODIPINE BESYLATE
     Indication: HYPERTENSION
     Dosage: 5 MG, UNK
     Route: 048
     Dates: start: 20130101, end: 20161219

REACTIONS (2)
  - Skin exfoliation [Not Recovered/Not Resolved]
  - Drug ineffective [Not Recovered/Not Resolved]

NARRATIVE: CASE EVENT DATE: 20161219
